FAERS Safety Report 18507402 (Version 1)
Quarter: 2020Q4

REPORT INFORMATION
  Report Type: Spontaneous
  Country: US (occurrence: US)
  Receive Date: 20201116
  Receipt Date: 20201116
  Transmission Date: 20210114
  Serious: No
  Sender: FDA-Public Use
  Company Number: US-PFIZER INC-2020419455

PATIENT
  Age: 78 Year
  Sex: Female
  Weight: 63.96 kg

DRUGS (1)
  1. IBRANCE [Suspect]
     Active Substance: PALBOCICLIB
     Indication: BREAST CANCER FEMALE
     Dosage: 125 MG, CYCLIC (DAYS 1-21 AND THEN SEVEN DAYS OFF)
     Route: 048
     Dates: start: 201910, end: 20201027

REACTIONS (1)
  - Neoplasm progression [Unknown]
